FAERS Safety Report 6467088-8 (Version None)
Quarter: 2009Q4

REPORT INFORMATION
  Report Type: 
  Country: None (occurrence: None)
  Receive Date: 20091202
  Receipt Date: 20091123
  Transmission Date: 20100525
  Serious: Yes (Hospitalization)
  Sender: FDA-Public Use
  Company Number: BO-PFIZER INC-2009301533

PATIENT
  Age: 58 Year
  Sex: Female

DRUGS (4)
  1. CELEBREX [Suspect]
     Indication: PAIN
     Dosage: 200 MG, 1X/DAY
     Route: 048
     Dates: start: 20091119
  2. LOSARTAN [Concomitant]
     Indication: HYPERTENSION
  3. CODEINE [Concomitant]
  4. CHLORPHENIRAMINE [Concomitant]
     Indication: ALLERGIC COUGH

REACTIONS (1)
  - ARRHYTHMIA [None]
